FAERS Safety Report 15940425 (Version 3)
Quarter: 2020Q2

REPORT INFORMATION
  Report Type: Spontaneous
  Country: US (occurrence: US)
  Receive Date: 20190208
  Receipt Date: 20200416
  Transmission Date: 20200713
  Serious: Yes (Disabling, Other)
  Sender: FDA-Public Use
  Company Number: US-MYLANLABS-2019M1012022

PATIENT
  Age: 63 Year
  Sex: Female
  Weight: 69 kg

DRUGS (14)
  1. ASPIRIN                            /00002701/ [Concomitant]
     Active Substance: ASPIRIN
     Indication: PROPHYLAXIS
     Dosage: ONE BABY ASPIRIN PER DAY
  2. SPIRONOLACTONE. [Concomitant]
     Active Substance: SPIRONOLACTONE
     Indication: ASCITES
     Dosage: ALTERNATE WITH FUROSEMIDE
     Dates: start: 201801
  3. VALSARTAN AND HYDROCHLOROTHIAZIDE TABLETS, USP [Suspect]
     Active Substance: HYDROCHLOROTHIAZIDE\VALSARTAN
     Dosage: UNK
     Dates: start: 201210, end: 201807
  4. ALPRAZOLAM. [Concomitant]
     Active Substance: ALPRAZOLAM
     Indication: ANXIETY
     Dosage: 0.25 MILLIGRAM AS NEEDDE 5 TABLETS PER YEAR
     Dates: start: 1995
  5. FUROSEMIDE. [Concomitant]
     Active Substance: FUROSEMIDE
     Indication: ASCITES
     Dosage: 1 EVERY OTHER DAY
     Dates: start: 201801
  6. TRADJENTA [Concomitant]
     Active Substance: LINAGLIPTIN
     Indication: DIABETES MELLITUS
     Dosage: 1 DOSAGE FORM, QD
     Dates: end: 201809
  7. VITAMIN D                          /07503901/ [Concomitant]
     Active Substance: VITAMIN D NOS
     Indication: BONE DISORDER
     Dosage: 2000 MILLIGRAM, QD
     Dates: start: 2010
  8. IBUPROFEN. [Concomitant]
     Active Substance: IBUPROFEN
     Indication: HEADACHE
  9. VALSARTAN AND HYDROCHLOROTHIAZIDE TABLETS, USP [Suspect]
     Active Substance: HYDROCHLOROTHIAZIDE\VALSARTAN
     Indication: HYPERTENSION
     Dosage: UNK
     Dates: start: 20121009, end: 20140814
  10. CITALOPRAM [Concomitant]
     Active Substance: CITALOPRAM HYDROBROMIDE
     Indication: DEPRESSION
     Dosage: 40 MILLIGRAM, QD
     Dates: start: 2000
  11. METFORMIN [Concomitant]
     Active Substance: METFORMIN HYDROCHLORIDE
     Indication: DIABETES MELLITUS
     Dosage: 1 TABLET 2X A DAY
     Dates: start: 1995
  12. OMEPRAZOLE. [Concomitant]
     Active Substance: OMEPRAZOLE
     Indication: GASTROOESOPHAGEAL REFLUX DISEASE
     Dosage: 2 MILLIGRAM, QD
     Dates: start: 201903
  13. GLIMEPIRIDE. [Concomitant]
     Active Substance: GLIMEPIRIDE
     Indication: HYPERTENSION
     Dosage: 2 MILLIGRAM
     Dates: start: 2018
  14. IBUPROFEN. [Concomitant]
     Active Substance: IBUPROFEN
     Indication: PAIN
     Dosage: I TAKE AS NEEDED

REACTIONS (3)
  - Recalled product administered [Unknown]
  - Hepatic cancer metastatic [Unknown]
  - Bladder cancer [Unknown]

NARRATIVE: CASE EVENT DATE: 201210
